FAERS Safety Report 5197739-X (Version None)
Quarter: 2006Q4

REPORT INFORMATION
  Report Type: 
  Country: None (occurrence: None)
  Receive Date: 20061227
  Receipt Date: 20061212
  Transmission Date: 20070319
  Serious: Yes (Other)
  Sender: FDA-Public Use
  Company Number: 2006145091

PATIENT
  Age: 52 Year
  Sex: Male
  Weight: 80 kg

DRUGS (5)
  1. LYRICA [Suspect]
     Indication: PAIN
     Dosage: 150 MG (75 MG, 2 IN 1 D)
     Dates: end: 20061015
  2. IBUPROFEN [Concomitant]
  3. LUMIRELAX (METHOCARBAMOL, METHYL NICOTINATE) [Concomitant]
  4. DEXTROPROPOXYPHENE (DEXTROPROPOXYPHENE) [Concomitant]
  5. METHOCARBAMOL [Concomitant]

REACTIONS (4)
  - EYELID OEDEMA [None]
  - HEADACHE [None]
  - HYPERHIDROSIS [None]
  - URTICARIA GENERALISED [None]
